FAERS Safety Report 8291561-3 (Version None)
Quarter: 2012Q2

REPORT INFORMATION
  Report Type: 
  Country: None (occurrence: None)
  Receive Date: 20120417
  Receipt Date: 20120405
  Transmission Date: 20120825
  Serious: Yes (Other)
  Sender: FDA-Public Use
  Company Number: AU-ELI_LILLY_AND_COMPANY-AU201204003085

PATIENT
  Sex: Female

DRUGS (1)
  1. HUMATROPE [Suspect]

REACTIONS (2)
  - MALAISE [None]
  - OVARIAN CANCER METASTATIC [None]
